FAERS Safety Report 13910648 (Version 1)
Quarter: 2017Q3

REPORT INFORMATION
  Report Type: Spontaneous
  Country: US (occurrence: US)
  Receive Date: 20170826
  Receipt Date: 20170826
  Transmission Date: 20171127
  Serious: No
  Sender: FDA-Public Use
  Company Number: None

PATIENT
  Sex: Female
  Weight: 85.5 kg

DRUGS (12)
  1. LEVOTHYROXINE. [Concomitant]
     Active Substance: LEVOTHYROXINE
  2. TRIAMCINOLONE ACETONIDE EXT [Concomitant]
  3. XGEVA [Concomitant]
     Active Substance: DENOSUMAB
  4. SENEXON [Suspect]
     Active Substance: SENNOSIDES A AND B
     Indication: CANCER PAIN
     Route: 048
     Dates: start: 20170608, end: 20170824
  5. SENNA SYRUP [Concomitant]
     Active Substance: SENNOSIDES
  6. ATORVASTATIN [Concomitant]
     Active Substance: ATORVASTATIN
  7. FULVESTRANT. [Concomitant]
     Active Substance: FULVESTRANT
  8. OMEPAXOLE [Concomitant]
  9. SENEXON [Suspect]
     Active Substance: SENNOSIDES A AND B
     Indication: LAXATIVE SUPPORTIVE CARE
     Route: 048
     Dates: start: 20170608, end: 20170824
  10. METOPRODOL SUCCINATE [Concomitant]
  11. OXYBUTYNIN [Concomitant]
     Active Substance: OXYBUTYNIN
  12. MORPHINE [Concomitant]
     Active Substance: MORPHINE

REACTIONS (2)
  - Dyspnoea [None]
  - Cough [None]

NARRATIVE: CASE EVENT DATE: 20170722
